FAERS Safety Report 25885719 (Version 1)
Quarter: 2025Q4

REPORT INFORMATION
  Report Type: Spontaneous
  Country: GB (occurrence: GB)
  Receive Date: 20251006
  Receipt Date: 20251006
  Transmission Date: 20260118
  Serious: Yes (Hospitalization, Other)
  Sender: PFIZER
  Company Number: None

PATIENT
  Age: 15 Year
  Sex: Female
  Weight: 45 kg

DRUGS (2)
  1. SPIRONOLACTONE [Suspect]
     Active Substance: SPIRONOLACTONE
     Indication: Acne
     Dosage: 50 MG, 1X/DAY
     Dates: start: 20250921, end: 20250929
  2. TRIMETHOPRIM [Concomitant]
     Active Substance: TRIMETHOPRIM
     Indication: Acne
     Dosage: UNK
     Dates: start: 20250921, end: 20250929

REACTIONS (7)
  - Product prescribing issue [Unknown]
  - Hyperkalaemia [Recovered/Resolved]
  - Nasopharyngitis [Unknown]
  - Rash [Unknown]
  - Diarrhoea [Unknown]
  - Hyponatraemia [Unknown]
  - Off label use [Unknown]

NARRATIVE: CASE EVENT DATE: 20250101
